FAERS Safety Report 12678103 (Version 4)
Quarter: 2016Q4

REPORT INFORMATION
  Report Type: Report from Study
  Country: PL (occurrence: PL)
  Receive Date: 20160823
  Receipt Date: 20161104
  Transmission Date: 20170207
  Serious: Yes (Death, Life-Threatening, Hospitalization, Disabling, Other)
  Sender: FDA-Public Use
  Company Number: PL-EISAI MEDICAL RESEARCH-E7080-00858-CLI-PL

PATIENT
  Age: 68 Year
  Sex: Female
  Weight: 81 kg

DRUGS (25)
  1. PRESTARIUM [Concomitant]
     Active Substance: PERINDOPRIL
  2. ESTAZOLAM. [Concomitant]
     Active Substance: ESTAZOLAM
  3. ALFADIOL [Concomitant]
     Active Substance: ALFACALCIDOL
  4. MAGNE B6 [Concomitant]
     Active Substance: MAGNESIUM\PYRIDOXINE
  5. TRITACE [Concomitant]
     Active Substance: RAMIPRIL
     Indication: HYPERTENSION
  6. TARCEFANDOL [Concomitant]
     Indication: PROPHYLAXIS
  7. HYDROCORTISONE. [Concomitant]
     Active Substance: HYDROCORTISONE
     Indication: PULMONARY EMBOLISM
  8. CLEXANE [Concomitant]
     Active Substance: ENOXAPARIN SODIUM
     Indication: PULMONARY EMBOLISM
  9. 20 % ALBUMINE SOLUTION [Concomitant]
     Indication: HYPOALBUMINAEMIA
  10. LOPERAMIDE [Concomitant]
     Active Substance: LOPERAMIDE
  11. LOKREN [Concomitant]
     Active Substance: BETAXOLOL HYDROCHLORIDE
  12. CALPEROS [Concomitant]
     Active Substance: CALCIUM CARBONATE
  13. LENVATINIB [Suspect]
     Active Substance: LENVATINIB
     Indication: THYROID CANCER
     Route: 048
     Dates: start: 20091208, end: 20120614
  14. LENVATINIB [Suspect]
     Active Substance: LENVATINIB
     Route: 048
     Dates: start: 201608, end: 20160812
  15. SPIRONOL [Concomitant]
     Active Substance: SPIRONOLACTONE
     Indication: DYSPNOEA
  16. EUTHYROX [Concomitant]
     Active Substance: LEVOTHYROXINE SODIUM
     Indication: POST PROCEDURAL HYPOTHYROIDISM
  17. VIVACOR [Concomitant]
     Active Substance: BISOPROLOL FUMARATE
     Indication: HYPERTENSION
  18. KALIPOZ [Concomitant]
     Active Substance: POTASSIUM CHLORIDE
     Indication: SUPPLEMENTATION THERAPY
  19. METRONIDAZOL [Concomitant]
     Active Substance: METRONIDAZOLE
     Indication: PROPHYLAXIS
  20. LENVATINIB [Suspect]
     Active Substance: LENVATINIB
     Route: 048
     Dates: start: 20120711, end: 20160810
  21. DOXAR [Concomitant]
     Indication: HYPERTENSION
  22. THIOCODOIN (MULTIDRUG) [Concomitant]
     Indication: COUGH
  23. XARTAN [Concomitant]
     Active Substance: LOSARTAN POTASSIUM
  24. POLPRAZOL [Concomitant]
     Active Substance: OMEPRAZOLE
  25. FUROSEMID [Concomitant]
     Active Substance: FUROSEMIDE
     Indication: HYPERTENSION

REACTIONS (5)
  - Pulmonary embolism [Recovered/Resolved]
  - Intestinal perforation [Fatal]
  - Hypotension [Not Recovered/Not Resolved]
  - Diarrhoea [Unknown]
  - Renal failure [Not Recovered/Not Resolved]

NARRATIVE: CASE EVENT DATE: 20120712
